FAERS Safety Report 23717607 (Version 1)
Quarter: 2024Q2

REPORT INFORMATION
  Report Type: Report from Study
  Country: US (occurrence: US)
  Receive Date: 20240408
  Receipt Date: 20240408
  Transmission Date: 20240716
  Serious: Yes (Other)
  Sender: FDA-Public Use
  Company Number: US-MYLANLABS-2024M1031169

PATIENT
  Sex: Male

DRUGS (1)
  1. ACETAZOLAMIDE [Suspect]
     Active Substance: ACETAZOLAMIDE
     Indication: Retinoschisis
     Dosage: 250 MILLIGRAM, BID
     Route: 048

REACTIONS (2)
  - Nephrolithiasis [Unknown]
  - Off label use [Unknown]
